FAERS Safety Report 9350686 (Version 1)
Quarter: 2013Q2

REPORT INFORMATION
  Report Type: Spontaneous
  Country: US (occurrence: US)
  Receive Date: 20130617
  Receipt Date: 20130617
  Transmission Date: 20140414
  Serious: Yes (Other)
  Sender: FDA-Public Use
  Company Number: PHEH2013US012864

PATIENT
  Sex: Male

DRUGS (7)
  1. DIOVAN [Suspect]
     Dosage: 160 MG,
  2. LIPITOR [Concomitant]
     Dosage: 40 MG, UNK
  3. METFORMIN [Concomitant]
     Dosage: 750 MG, BID
  4. INSULIN [Concomitant]
     Dosage: UNK, BID
  5. NOVOLOG [Concomitant]
     Dosage: 1 DF, (35 UNITS),BID
  6. BAYER ASPIRIN [Concomitant]
     Dosage: 81 MG, UNK
  7. LANTUS [Concomitant]
     Dosage: 56 U, BID

REACTIONS (1)
  - Diabetes mellitus [Unknown]
